FAERS Safety Report 8136123-3 (Version None)
Quarter: 2012Q1

REPORT INFORMATION
  Report Type: 
  Country: None (occurrence: None)
  Receive Date: 20120214
  Receipt Date: 20111028
  Transmission Date: 20120608
  Serious: No
  Sender: FDA-Public Use
  Company Number: US-COVIDIEN/TYCO HEALTHCARE/MALLINCKRODT-T201101778

PATIENT
  Sex: Male

DRUGS (3)
  1. DURAGESIC-100 [Concomitant]
     Dosage: 100 UG/HR, Q 48 HOURS
     Dates: start: 20100101, end: 20110101
  2. FENTANYL-100 [Suspect]
     Indication: PAIN
     Dosage: 100 UG/HR,Q 48 HRS
     Route: 062
     Dates: start: 20110601
  3. OXYCODONE HCL [Concomitant]
     Indication: BREAKTHROUGH PAIN
     Dosage: 30 MG, PRN

REACTIONS (2)
  - DRUG EFFECT DECREASED [None]
  - BREAKTHROUGH PAIN [None]
